FAERS Safety Report 6687424-7 (Version None)
Quarter: 2010Q2

REPORT INFORMATION
  Report Type: 
  Country: None (occurrence: None)
  Receive Date: 20100415
  Receipt Date: 20100331
  Transmission Date: 20101027
  Serious: Yes (Hospitalization)
  Sender: FDA-Public Use
  Company Number: 2010AL002155

PATIENT
  Age: 77 Year
  Sex: Male

DRUGS (2)
  1. METFORMIN HCL [Suspect]
     Indication: TYPE 2 DIABETES MELLITUS
     Dosage: 850 MG; TID;
     Dates: end: 20090702
  2. GLIBENESE [Concomitant]

REACTIONS (6)
  - ABNORMAL BEHAVIOUR [None]
  - ANAEMIA MACROCYTIC [None]
  - CONFUSIONAL STATE [None]
  - DYSPNOEA [None]
  - HYPOGLYCAEMIA [None]
  - MEMORY IMPAIRMENT [None]
